FAERS Safety Report 7375683-7 (Version None)
Quarter: 2011Q1

REPORT INFORMATION
  Report Type: 
  Country: None (occurrence: None)
  Receive Date: 20110325
  Receipt Date: 20110321
  Transmission Date: 20110831
  Serious: Yes (Hospitalization)
  Sender: FDA-Public Use
  Company Number: US-EISAI INC-E7389-01010-CLI-US

PATIENT
  Sex: Female
  Weight: 81 kg

DRUGS (19)
  1. NIFEDIAC [Concomitant]
     Indication: BLOOD PRESSURE
  2. ALPHA LIPOIC ACID [Concomitant]
     Indication: IMMUNE SYSTEM DISORDER
  3. ADVIL LIQUI-GELS [Concomitant]
     Indication: PAIN
  4. ASPIRIN [Concomitant]
  5. ASCORBIC ACID [Concomitant]
     Indication: IMMUNE SYSTEM DISORDER
  6. BIOTIN [Concomitant]
  7. SELENIUM [Concomitant]
     Indication: IMMUNE SYSTEM DISORDER
  8. PROBIOTIC [Concomitant]
     Indication: IMMUNE SYSTEM DISORDER
  9. CHERATUSSIN AC [Concomitant]
     Indication: COUGH
     Dosage: 100/10MG
  10. MULTI-VITAMIN [Concomitant]
     Indication: VITAMIN SUPPLEMENTATION
     Dosage: 1 TBSP
  11. COD LIVER OIL [Concomitant]
     Indication: IMMUNE SYSTEM DISORDER
     Dosage: 1 TSP
  12. CAL/MAG/D3 [Concomitant]
     Indication: IMMUNE SYSTEM DISORDER
     Dosage: 1K/500/400
  13. ZINC LOZENGES [Concomitant]
     Indication: IMMUNE SYSTEM DISORDER
  14. E7389 (BOLD) [Suspect]
     Indication: BREAST CANCER
     Route: 041
     Dates: start: 20100910
  15. SOTALOL HCL [Concomitant]
  16. LACTULOSE [Concomitant]
     Indication: CONSTIPATION
     Dosage: 10GM
  17. SPIRONOLACTONE [Concomitant]
     Indication: BLOOD POTASSIUM
     Dates: start: 20100824
  18. VITAMIN E [Concomitant]
     Indication: IMMUNE SYSTEM DISORDER
  19. MUCINEX DM [Concomitant]
     Indication: COUGH
     Dosage: 600/30MG

REACTIONS (1)
  - RADIATION PNEUMONITIS [None]
